FAERS Safety Report 6380975-4 (Version None)
Quarter: 2009Q3

REPORT INFORMATION
  Report Type: 
  Country: None (occurrence: None)
  Receive Date: 20090924
  Receipt Date: 20090924
  Transmission Date: 20100115
  Serious: Yes (Hospitalization)
  Sender: FDA-Public Use
  Company Number: None

PATIENT
  Age: 28 Year
  Sex: Female
  Weight: 70.4 kg

DRUGS (9)
  1. TEMODAR [Suspect]
     Indication: GLIOBLASTOMA MULTIFORME
     Dosage: 120MG PO
     Route: 048
     Dates: start: 20090610, end: 20090721
  2. DEXAMETHASONE 0.5MG TAB [Concomitant]
  3. PRILOSEC [Concomitant]
  4. DUCOLOX [Concomitant]
  5. TYLENOL PRN [Concomitant]
  6. ZOFRAN [Concomitant]
  7. LACTULOSE [Concomitant]
  8. TEMODAR [Suspect]
     Dosage: 225MG PO
     Route: 048
     Dates: start: 20090824, end: 20090828
  9. MILK OF MAGNESIA TAB [Concomitant]

REACTIONS (6)
  - CEREBRAL CYST [None]
  - CONDITION AGGRAVATED [None]
  - HEADACHE [None]
  - HYPERTENSION [None]
  - OEDEMA PERIPHERAL [None]
  - TACHYCARDIA [None]
